FAERS Safety Report 5248304-7 (Version None)
Quarter: 2007Q1

REPORT INFORMATION
  Report Type: 
  Country: None (occurrence: None)
  Receive Date: 20070227
  Receipt Date: 20070214
  Transmission Date: 20070707
  Serious: Yes (Other)
  Sender: FDA-Public Use
  Company Number: BR-SHR-BR-2007-005651

PATIENT
  Age: 68 Year
  Sex: Female

DRUGS (4)
  1. BETASERON [Suspect]
     Indication: MULTIPLE SCLEROSIS
     Dosage: 8 MIU, EVERY 2D
     Route: 058
     Dates: start: 20021208
  2. CRESTOR [Concomitant]
     Dosage: UNK, UNK
     Route: 065
  3. FLUOXETINE [Concomitant]
     Dosage: UNK, UNK
     Route: 048
  4. BROMAZEPAM [Concomitant]
     Dosage: UNK, UNK
     Route: 048

REACTIONS (4)
  - CATARACT [None]
  - MYOPIA [None]
  - THROMBOSIS [None]
  - VISION BLURRED [None]
